FAERS Safety Report 6181070-X (Version None)
Quarter: 2009Q2

REPORT INFORMATION
  Report Type: 
  Country: None (occurrence: None)
  Receive Date: 20090504
  Receipt Date: 20090430
  Transmission Date: 20091009
  Serious: Yes (Death, Life-Threatening, Hospitalization)
  Sender: FDA-Public Use
  Company Number: 2008SP001606

PATIENT
  Age: 46 Year
  Sex: Male
  Weight: 93.7 kg

DRUGS (8)
  1. TEMOZOLOMIDE [Suspect]
     Indication: COLORECTAL CANCER
     Dosage: 250 MG; QD;PO, 250 MG;QD;PO
     Route: 048
  2. GABAPENTIN [Concomitant]
  3. OLANZAPINE [Concomitant]
  4. VENLAFAXINE HCL [Concomitant]
  5. TRAMADOL [Concomitant]
  6. CELECOXIB [Concomitant]
  7. OMEPRAZOLE [Concomitant]
  8. METHADONE HCL [Concomitant]

REACTIONS (8)
  - ASTHENIA [None]
  - BLOOD GLUCOSE INCREASED [None]
  - COLORECTAL CANCER [None]
  - DEHYDRATION [None]
  - DISEASE PROGRESSION [None]
  - DIZZINESS [None]
  - RENAL FAILURE ACUTE [None]
  - URINARY RETENTION [None]
